FAERS Safety Report 9778004 (Version 2)
Quarter: 2013Q4

REPORT INFORMATION
  Report Type: Spontaneous
  Country: CA (occurrence: CA)
  Receive Date: 20131223
  Receipt Date: 20131223
  Transmission Date: 20140711
  Serious: Yes (Other)
  Sender: FDA-Public Use
  Company Number: CA-AMGEN-CANSP2013084579

PATIENT
  Age: 66 Year
  Sex: Female

DRUGS (1)
  1. PROLIA [Suspect]
     Indication: OSTEOPOROSIS POSTMENOPAUSAL
     Dosage: UNK
     Route: 065
     Dates: start: 20110525

REACTIONS (6)
  - Precancerous skin lesion [Unknown]
  - Influenza [Unknown]
  - Diarrhoea [Unknown]
  - Melanocytic naevus [Unknown]
  - Pain [Unknown]
  - Erythema [Not Recovered/Not Resolved]
